FAERS Safety Report 4456366-X (Version None)
Quarter: 2004Q3

REPORT INFORMATION
  Report Type: 
  Country: None (occurrence: None)
  Receive Date: 20040917
  Receipt Date: 20040901
  Transmission Date: 20050211
  Serious: Yes (Hospitalization)
  Sender: FDA-Public Use
  Company Number: DSA_24961_2004

PATIENT
  Age: 27 Year
  Sex: Female

DRUGS (3)
  1. TAVOR [Suspect]
     Dosage: 35 TAB ONCE PO
     Route: 048
     Dates: start: 20040829, end: 20040829
  2. LEVOMEPROMAZINE [Suspect]
     Dosage: 500 MG ONCE PO
     Route: 048
     Dates: start: 20040829, end: 20040829
  3. ZOLPIDEM TARTRATE [Suspect]
     Dosage: 75 MG ONCE PO
     Route: 048
     Dates: start: 20040829, end: 20040829

REACTIONS (3)
  - MULTIPLE DRUG OVERDOSE INTENTIONAL [None]
  - SOMNOLENCE [None]
  - TACHYCARDIA [None]
